FAERS Safety Report 5138710-3 (Version None)
Quarter: 2006Q4

REPORT INFORMATION
  Report Type: 
  Country: None (occurrence: None)
  Receive Date: 20061030
  Receipt Date: 20061019
  Transmission Date: 20070319
  Serious: Yes (Hospitalization)
  Sender: FDA-Public Use
  Company Number: US-JNJFOC-20060905133

PATIENT
  Sex: Female

DRUGS (15)
  1. INFLIXIMAB [Suspect]
     Indication: RHEUMATOID ARTHRITIS
     Route: 042
  2. ZOCOR [Concomitant]
  3. FOSAMAX [Concomitant]
  4. VERAPAMIL [Concomitant]
  5. ZESTRIL [Concomitant]
  6. PLAQUENIL [Concomitant]
  7. FOLIC ACID [Concomitant]
  8. EVISTA [Concomitant]
  9. METHOTREXATE SODIUM [Concomitant]
  10. TRAZODONE HCL [Concomitant]
  11. PERCOCET [Concomitant]
  12. CALCIUM+D [Concomitant]
  13. ASPIRIN [Concomitant]
  14. GLUCOSAMINE/CHONDROITIN [Concomitant]
  15. VITAMIN CAP [Concomitant]

REACTIONS (3)
  - ARTERIAL OCCLUSIVE DISEASE [None]
  - INTESTINAL ISCHAEMIA [None]
  - MESENTERIC ARTERY STENOSIS [None]
